FAERS Safety Report 25952908 (Version 1)
Quarter: 2025Q4

REPORT INFORMATION
  Report Type: Spontaneous
  Country: TW (occurrence: TW)
  Receive Date: 20251023
  Receipt Date: 20251023
  Transmission Date: 20260117
  Serious: Yes (Hospitalization, Other)
  Sender: SANOFI AVENTIS
  Company Number: TW-SA-2025SA313105

PATIENT
  Age: 69 Year
  Sex: Female

DRUGS (1)
  1. TAXOTERE [Suspect]
     Active Substance: DOCETAXEL
     Dosage: UNK
     Dates: start: 202407

REACTIONS (15)
  - Oxygen saturation decreased [Recovered/Resolved]
  - Pain [Recovering/Resolving]
  - Cyanosis [Recovering/Resolving]
  - Confusional state [Recovering/Resolving]
  - Aphasia [Recovering/Resolving]
  - Mitral valve prolapse [Recovering/Resolving]
  - Mitral valve incompetence [Recovering/Resolving]
  - Chordae tendinae rupture [Recovering/Resolving]
  - Pleural effusion [Unknown]
  - Respiratory failure [Recovering/Resolving]
  - Respiratory distress [Recovering/Resolving]
  - Dyspnoea [Recovering/Resolving]
  - Dyspnoea [Recovering/Resolving]
  - Palpitations [Recovered/Resolved]
  - Fatigue [Recovering/Resolving]

NARRATIVE: CASE EVENT DATE: 20250505
